FAERS Safety Report 10174028 (Version 1)
Quarter: 2014Q2

REPORT INFORMATION
  Report Type: Spontaneous
  Country: US (occurrence: None)
  Receive Date: 20140514
  Receipt Date: 20140514
  Transmission Date: 20141212
  Serious: Yes (Other)
  Sender: FDA-Public Use
  Company Number: None

PATIENT
  Age: 34 Year
  Sex: Female
  Weight: 68.04 kg

DRUGS (7)
  1. CITRUCEL [Suspect]
     Indication: BOWEL MOVEMENT IRREGULARITY
     Dosage: 1 TABLESPOON
     Route: 048
  2. SERTRALINE [Concomitant]
  3. OMEGA 3 [Concomitant]
  4. 1000 VITAMIN C WTH ROSEHIPS [Concomitant]
  5. VITAMIN D3 [Concomitant]
  6. MULTI-VITAMIN [Concomitant]
  7. VITAMIN B [Concomitant]

REACTIONS (4)
  - Diarrhoea [None]
  - Vomiting [None]
  - Abdominal pain upper [None]
  - Malaise [None]
